FAERS Safety Report 14008126 (Version 1)
Quarter: 2017Q3

REPORT INFORMATION
  Report Type: Report from Study
  Country: US (occurrence: US)
  Receive Date: 20170925
  Receipt Date: 20170925
  Transmission Date: 20171128
  Serious: Yes (Other)
  Sender: FDA-Public Use
  Company Number: US-SHIRE-US201721285

PATIENT
  Age: 68 Year
  Sex: Female

DRUGS (1)
  1. GATTEX [Suspect]
     Active Substance: TEDUGLUTIDE\WATER
     Indication: SHORT-BOWEL SYNDROME
     Dosage: 1.25 MG, 1X/DAY:QD
     Route: 058
     Dates: start: 20170420

REACTIONS (2)
  - Haemorrhage [Unknown]
  - Nodule [Unknown]

NARRATIVE: CASE EVENT DATE: 20170824
